FAERS Safety Report 17637401 (Version 1)
Quarter: 2020Q2

REPORT INFORMATION
  Report Type: Spontaneous
  Country: US (occurrence: US)
  Receive Date: 20200406
  Receipt Date: 20200406
  Transmission Date: 20200713
  Serious: Yes (Life-Threatening, Other)
  Sender: FDA-Public Use
  Company Number: None

PATIENT
  Age: 38 Year
  Sex: Female
  Weight: 63.5 kg

DRUGS (3)
  1. RISPERIDONE. [Suspect]
     Active Substance: RISPERIDONE
     Dosage: ?          QUANTITY:2 MG MILLIGRAM(S);OTHER FREQUENCY:BEDTIME ;?
     Route: 048
  2. RISPEREDOL [Concomitant]
  3. LITHIUM. [Concomitant]
     Active Substance: LITHIUM

REACTIONS (5)
  - Spinal column injury [None]
  - Cognitive disorder [None]
  - Wheezing [None]
  - Nerve compression [None]
  - Hypoaesthesia [None]

NARRATIVE: CASE EVENT DATE: 20200331
